FAERS Safety Report 8190273 (Version 2)
Quarter: 2013Q3

REPORT INFORMATION
  Report Type: Spontaneous
  Country: CA (occurrence: CA)
  Receive Date: 20111019
  Receipt Date: 20130723
  Transmission Date: 20140515
  Serious: Yes (Other)
  Sender: FDA-Public Use
  Company Number: CA-ROCHE-1003860

PATIENT
  Age: 55 Year
  Sex: Female

DRUGS (6)
  1. XOLAIR [Suspect]
     Indication: ASTHMA
     Route: 058
     Dates: start: 20080926
  2. XOLAIR [Suspect]
     Route: 058
     Dates: start: 20090421
  3. XOLAIR [Suspect]
     Route: 058
     Dates: start: 20130412
  4. SYMBICORT [Concomitant]
  5. BRICANYL [Concomitant]
  6. METFORMIN [Concomitant]

REACTIONS (8)
  - Thrombosis [Unknown]
  - Abdominal pain [Unknown]
  - Inflammation [Unknown]
  - Contusion [Not Recovered/Not Resolved]
  - Diarrhoea [Unknown]
  - Contusion [Not Recovered/Not Resolved]
  - Gastrointestinal inflammation [Unknown]
  - Blood pressure systolic increased [Unknown]
